FAERS Safety Report 5372714-0 (Version None)
Quarter: 2007Q2

REPORT INFORMATION
  Report Type: 
  Country: None (occurrence: None)
  Receive Date: 20070626
  Receipt Date: 20070613
  Transmission Date: 20071010
  Serious: No
  Sender: FDA-Public Use
  Company Number: 2007JP002604

PATIENT
  Age: 83 Year
  Sex: Female

DRUGS (1)
  1. VESICARE [Suspect]
     Indication: HYPERTONIC BLADDER
     Dosage: 2.5MG, UNKNOWN/D, ORAL
     Route: 048
     Dates: start: 20070419, end: 20070430

REACTIONS (1)
  - VISUAL ACUITY REDUCED [None]
